FAERS Safety Report 16333203 (Version 1)
Quarter: 2019Q2

REPORT INFORMATION
  Report Type: Spontaneous
  Country: US (occurrence: US)
  Receive Date: 20190520
  Receipt Date: 20190520
  Transmission Date: 20190711
  Serious: No
  Sender: FDA-Public Use
  Company Number: US-GE HEALTHCARE LIFE SCIENCES-2019CSU001495

PATIENT
  Age: 30 Year
  Sex: Male
  Weight: 141.3 kg

DRUGS (10)
  1. NITRO [Concomitant]
     Active Substance: NITROGLYCERIN
     Indication: CHEST PAIN
  2. LANSOPRAZOLE. [Concomitant]
     Active Substance: LANSOPRAZOLE
  3. MYOVIEW [Suspect]
     Active Substance: TECHNETIUM TC-99M TETROFOSMIN
     Indication: SCAN MYOCARDIAL PERFUSION
  4. MYOVIEW [Suspect]
     Active Substance: TECHNETIUM TC-99M TETROFOSMIN
     Indication: CHEST PAIN
  5. MYOVIEW [Suspect]
     Active Substance: TECHNETIUM TC-99M TETROFOSMIN
     Indication: CARDIAC STRESS TEST
     Dosage: 1480 MBQ (40 MCI), SINGLE
     Route: 042
     Dates: start: 20190306, end: 20190306
  6. MVI [Concomitant]
     Active Substance: VITAMINS
  7. NITRO [Concomitant]
     Active Substance: NITROGLYCERIN
     Indication: LIMB DISCOMFORT
  8. TECHNETIUM TC 99M [Concomitant]
     Active Substance: TECHNETIUM TC-99M
     Dosage: UNK, SINGLE
     Route: 042
     Dates: start: 20190306, end: 20190306
  9. NITRO [Concomitant]
     Active Substance: NITROGLYCERIN
     Indication: HEADACHE
  10. CARDIZEM [Concomitant]
     Active Substance: DILTIAZEM HYDROCHLORIDE

REACTIONS (2)
  - Drug ineffective [Recovered/Resolved]
  - No adverse event [Recovered/Resolved]

NARRATIVE: CASE EVENT DATE: 20190306
